FAERS Safety Report 26175839 (Version 1)
Quarter: 2025Q4

REPORT INFORMATION
  Report Type: Spontaneous
  Country: KR (occurrence: KR)
  Receive Date: 20251218
  Receipt Date: 20251218
  Transmission Date: 20260117
  Serious: Yes (Other)
  Sender: MYLAN
  Company Number: KR-MYLANLABS-2025M1107544

PATIENT
  Sex: Male

DRUGS (12)
  1. CELEBREX [Suspect]
     Active Substance: CELECOXIB
     Indication: Product used for unknown indication
     Dosage: 1 DOSAGE FORM, QD
     Dates: start: 20240326, end: 20240327
  2. CELEBREX [Suspect]
     Active Substance: CELECOXIB
     Dosage: 1 DOSAGE FORM, QD
     Route: 065
     Dates: start: 20240326, end: 20240327
  3. CELEBREX [Suspect]
     Active Substance: CELECOXIB
     Dosage: 1 DOSAGE FORM, QD
     Route: 065
     Dates: start: 20240326, end: 20240327
  4. CELEBREX [Suspect]
     Active Substance: CELECOXIB
     Dosage: 1 DOSAGE FORM, QD
     Dates: start: 20240326, end: 20240327
  5. COLCHICINE [Concomitant]
     Active Substance: COLCHICINE
     Dosage: 1 DOSAGE FORM, QD
     Dates: start: 20240326, end: 20240326
  6. COLCHICINE [Concomitant]
     Active Substance: COLCHICINE
     Dosage: 1 DOSAGE FORM, QD
     Route: 065
     Dates: start: 20240326, end: 20240326
  7. COLCHICINE [Concomitant]
     Active Substance: COLCHICINE
     Dosage: 1 DOSAGE FORM, QD
     Route: 065
     Dates: start: 20240326, end: 20240326
  8. COLCHICINE [Concomitant]
     Active Substance: COLCHICINE
     Dosage: 1 DOSAGE FORM, QD
     Dates: start: 20240326, end: 20240326
  9. MESALAMINE [Concomitant]
     Active Substance: MESALAMINE
     Dosage: 1 DOSAGE FORM, QD
     Dates: start: 20240326, end: 20240326
  10. MESALAMINE [Concomitant]
     Active Substance: MESALAMINE
     Dosage: 1 DOSAGE FORM, QD
     Route: 065
     Dates: start: 20240326, end: 20240326
  11. MESALAMINE [Concomitant]
     Active Substance: MESALAMINE
     Dosage: 1 DOSAGE FORM, QD
     Route: 065
     Dates: start: 20240326, end: 20240326
  12. MESALAMINE [Concomitant]
     Active Substance: MESALAMINE
     Dosage: 1 DOSAGE FORM, QD
     Dates: start: 20240326, end: 20240326

REACTIONS (1)
  - Urinary retention [Unknown]

NARRATIVE: CASE EVENT DATE: 20240326
